FAERS Safety Report 9783045 (Version 2)
Quarter: 2014Q1

REPORT INFORMATION
  Report Type: Report from Study
  Country: BR (occurrence: BR)
  Receive Date: 20131226
  Receipt Date: 20140204
  Transmission Date: 20141002
  Serious: Yes (Hospitalization, Other)
  Sender: FDA-Public Use
  Company Number: PHHY2013BR151567

PATIENT
  Sex: Female
  Weight: 53 kg

DRUGS (4)
  1. EXELON [Suspect]
     Indication: DEMENTIA ALZHEIMER^S TYPE
     Dosage: 3 DF, DAILY (IN THE MORNING, IN THE AFTERNOON AND AT NIGHT)
  2. EXELON [Suspect]
     Dosage: 3 DF, DAILY (IN THE MORNING, IN THE AFTERNOON AND AT NIGHT)
  3. RIVOTRIL [Concomitant]
     Indication: INSOMNIA
     Dosage: UNK UKN, UNK
  4. CITALOPRAM [Concomitant]
     Indication: DEPRESSION
     Dosage: UNK UKN, UNK

REACTIONS (11)
  - Femur fracture [Recovering/Resolving]
  - Abasia [Recovering/Resolving]
  - Dysstasia [Recovering/Resolving]
  - Pain [Recovering/Resolving]
  - Fall [Recovering/Resolving]
  - Dementia Alzheimer^s type [Recovering/Resolving]
  - Insomnia [Recovering/Resolving]
  - Weight decreased [Recovering/Resolving]
  - Dizziness [Recovering/Resolving]
  - Wrong technique in drug usage process [Recovering/Resolving]
  - Drug ineffective [Recovering/Resolving]
